FAERS Safety Report 11643926 (Version 2)
Quarter: 2015Q4

REPORT INFORMATION
  Report Type: Spontaneous
  Country: IE (occurrence: IE)
  Receive Date: 20151020
  Receipt Date: 20151030
  Transmission Date: 20160304
  Serious: Yes (Death)
  Sender: FDA-Public Use
  Company Number: IE-CELGENE-IRL-2015102461

PATIENT
  Age: 47 Year
  Sex: Male

DRUGS (2)
  1. POMALIDOMIDE [Suspect]
     Active Substance: POMALIDOMIDE
     Indication: PLASMA CELL MYELOMA
     Dosage: 4 MILLIGRAM
     Route: 048
     Dates: start: 20150925, end: 20150926
  2. CARFILZOMIB [Concomitant]
     Active Substance: CARFILZOMIB
     Indication: PLASMA CELL MYELOMA
     Route: 065

REACTIONS (1)
  - Plasma cell leukaemia [Fatal]

NARRATIVE: CASE EVENT DATE: 20151002
